FAERS Safety Report 8617273-1 (Version None)
Quarter: 2012Q3

REPORT INFORMATION
  Report Type: 
  Country: None (occurrence: None)
  Receive Date: 20120823
  Receipt Date: 20120813
  Transmission Date: 20120928
  Serious: No
  Sender: FDA-Public Use
  Company Number: US-ASTRAZENECA-2012SE57349

PATIENT
  Age: 55 Year
  Sex: Male

DRUGS (1)
  1. CRESTOR [Suspect]
     Route: 048

REACTIONS (5)
  - MOBILITY DECREASED [None]
  - ADVERSE EVENT [None]
  - ROAD TRAFFIC ACCIDENT [None]
  - LIMB INJURY [None]
  - DRUG DOSE OMISSION [None]
